FAERS Safety Report 20473338 (Version 4)
Quarter: 2024Q1

REPORT INFORMATION
  Report Type: Other
  Country: ES (occurrence: None)
  Receive Date: 20220215
  Receipt Date: 20240329
  Transmission Date: 20240410
  Serious: No
  Sender: FDA-Public Use
  Company Number: ES-ROCHE-3025307

PATIENT
  Age: 40 Year
  Sex: Male

DRUGS (19)
  1. OCRELIZUMAB [Suspect]
     Active Substance: OCRELIZUMAB
     Indication: Relapsing-remitting multiple sclerosis
     Route: 042
     Dates: start: 20200319, end: 20200319
  2. OCRELIZUMAB [Suspect]
     Active Substance: OCRELIZUMAB
     Dosage: TOTAL VOLUME ADMINISTERED 500 ML
     Route: 042
     Dates: start: 20200903, end: 20200903
  3. OCRELIZUMAB [Suspect]
     Active Substance: OCRELIZUMAB
     Dosage: TOTAL VOLUME ADMINISTERED 500 ML
     Route: 042
     Dates: start: 20230309, end: 20230309
  4. OCRELIZUMAB [Suspect]
     Active Substance: OCRELIZUMAB
     Dosage: TOTAL VOLUME ADMINISTERED 500 ML
     Route: 042
     Dates: start: 20240311, end: 20240311
  5. OCRELIZUMAB [Suspect]
     Active Substance: OCRELIZUMAB
     Dosage: TOTAL VOLUME ADMINISTERED 500 ML
     Route: 042
     Dates: start: 20220907, end: 20220907
  6. OCRELIZUMAB [Suspect]
     Active Substance: OCRELIZUMAB
     Dosage: TOTAL VOLUME ADMINISTERED 500 ML
     Route: 042
     Dates: start: 20210902, end: 20210902
  7. OCRELIZUMAB [Suspect]
     Active Substance: OCRELIZUMAB
     Dosage: TOTAL VOLUME ADMINISTERED 250 ML
     Route: 042
     Dates: start: 20200402, end: 20200402
  8. OCRELIZUMAB [Suspect]
     Active Substance: OCRELIZUMAB
     Dosage: TOTAL VOLUME ADMINISTERED 500 ML
     Route: 042
     Dates: start: 20230911, end: 20230911
  9. OCRELIZUMAB [Suspect]
     Active Substance: OCRELIZUMAB
     Dosage: TOTAL VOLUME ADMINISTERED 500 ML
     Route: 042
     Dates: start: 20210304, end: 20210304
  10. OCRELIZUMAB [Suspect]
     Active Substance: OCRELIZUMAB
     Dosage: TOTAL VOLUME ADMINISTERED 500 ML
     Route: 042
     Dates: start: 20220302, end: 20220302
  11. DALFAMPRIDINE [Concomitant]
     Active Substance: DALFAMPRIDINE
     Route: 048
  12. PREGABALIN [Concomitant]
     Active Substance: PREGABALIN
     Route: 048
     Dates: start: 20210209
  13. AMITRIPTYLINE [Concomitant]
     Active Substance: AMITRIPTYLINE
     Route: 048
     Dates: start: 20210302
  14. PROPIVERINE [Concomitant]
     Active Substance: PROPIVERINE
     Route: 048
     Dates: start: 20210624, end: 20220704
  15. NABIXIMOLS [Concomitant]
     Active Substance: NABIXIMOLS
     Route: 055
     Dates: start: 20210420
  16. SIBELIUM (SPAIN) [Concomitant]
     Route: 048
     Dates: start: 20211020
  17. LIORESAL [Concomitant]
     Active Substance: BACLOFEN
     Route: 048
     Dates: start: 20211118
  18. NAPROXEN SODIUM [Concomitant]
     Active Substance: NAPROXEN\NAPROXEN SODIUM
     Route: 048
     Dates: start: 20211222
  19. VORTIOXETINE [Concomitant]
     Active Substance: VORTIOXETINE
     Dates: start: 20210801

REACTIONS (1)
  - COVID-19 [Recovered/Resolved]

NARRATIVE: CASE EVENT DATE: 20211222
